FAERS Safety Report 11690447 (Version 7)
Quarter: 2016Q4

REPORT INFORMATION
  Report Type: Spontaneous
  Country: US (occurrence: US)
  Receive Date: 20151102
  Receipt Date: 20161114
  Transmission Date: 20170206
  Serious: Yes (Other)
  Sender: FDA-Public Use
  Company Number: US-PFIZER INC-2015356271

PATIENT
  Age: 77 Year
  Sex: Female
  Weight: 56.69 kg

DRUGS (22)
  1. CALCIUM CITRATE/VITAMIN D [Concomitant]
     Active Substance: CALCIUM CITRATE\VITAMIN D
     Dosage: UNK UNK, 3X/DAY (400-500 TAKES ONE TABLET THREE TIMES PER DAY)
  2. FLUOROURACIL. [Concomitant]
     Active Substance: FLUOROURACIL
     Dosage: UNK UNK, 2X/DAY (APPLY 1 APPLICATION TO AFFECTED AREA TWICE DAILY FOR 6 WEEKS)
     Route: 061
  3. FLONASE [Concomitant]
     Active Substance: FLUTICASONE PROPIONATE
     Dosage: UNK UNK, 1X/DAY (50 MCG/ACTUATION NASAL SPRAY/ ONE PUFF PER NOSTRIL BEFORE LYING DOWN FOR BED)
  4. SYNTHROID [Concomitant]
     Active Substance: LEVOTHYROXINE SODIUM
     Indication: THYROID DISORDER
     Dosage: 0.075 MG TABLET, 1 TABLET A DAY
  5. CALCIUM [Concomitant]
     Active Substance: CALCIUM
     Indication: HYPERTHYROIDISM
  6. VITAMIN D [Concomitant]
     Active Substance: CHOLECALCIFEROL
     Indication: HYPERTHYROIDISM
  7. FISH OIL [Concomitant]
     Active Substance: FISH OIL
     Dosage: 500 MG, DAILY
     Route: 048
  8. REVATIO [Suspect]
     Active Substance: SILDENAFIL CITRATE
     Indication: PULMONARY ARTERIAL HYPERTENSION
     Dosage: 10 MG, 2X/DAY (10 MG (HALF A TABLET) TWICE A DAY)
     Dates: start: 2005
  9. PROVENTIL HFA [Concomitant]
     Active Substance: ALBUTEROL SULFATE
     Indication: WHEEZING
  10. SYNTHROID [Concomitant]
     Active Substance: LEVOTHYROXINE SODIUM
     Dosage: 75 UG, DAILY
     Route: 048
  11. VALIUM [Concomitant]
     Active Substance: DIAZEPAM
     Dosage: 5 MG, AS NEEDED (TAKES 1/2 TAB THREE TIMES DAILY AS NECESSARY)
     Route: 048
  12. SINGULAIR [Concomitant]
     Active Substance: MONTELUKAST SODIUM
     Dosage: 10 MG, 1X/DAY (TAKE 1 TABLET BY MOUTH DAILY AT BEDTIME)
     Route: 048
  13. MESTINON [Concomitant]
     Active Substance: PYRIDOSTIGMINE BROMIDE
     Dosage: 30 MG, 3X/DAY (TAKE 1/2 TABLET BY MOUTH THREE TIMES DAILY)
     Route: 048
  14. DIAZEPAM. [Concomitant]
     Active Substance: DIAZEPAM
     Dosage: UNK
  15. PYRIDOXAMINE [Concomitant]
     Dosage: UNK
  16. ROCALTROL [Concomitant]
     Active Substance: CALCITRIOL
     Dosage: 0.25 UG, DAILY
     Route: 048
  17. REVATIO [Suspect]
     Active Substance: SILDENAFIL CITRATE
     Indication: PULMONARY HYPERTENSION
     Dosage: 10 MG, 2X/DAY (20MG TABLET-1/2 TABLET) TWICE A DAY, 1/2 TABLET IN MORNING AND 1/2 TABLET IN THE EVEN
     Route: 048
     Dates: start: 2012
  18. FLU VACCINE [Suspect]
     Active Substance: INFLUENZA VIRUS VACCINE
     Indication: IMMUNISATION
     Dosage: 1 DF, SINGLE
     Dates: start: 20151019, end: 20151019
  19. FLUTICASONE [Concomitant]
     Active Substance: FLUTICASONE\FLUTICASONE PROPIONATE
     Indication: FEELING ABNORMAL
  20. PROVENTIL HFA [Concomitant]
     Active Substance: ALBUTEROL SULFATE
     Indication: DYSPNOEA
     Dosage: UNK UNK, AS NEEDED (90 MCG/ACTUATION INHALER; INHALE 2 PUFFS AS INSTRUCTED EVERY 6 HOURS AS NEEDED)
  21. COENZYME Q10 [Concomitant]
     Active Substance: UBIDECARENONE
     Dosage: 300 MG, DAILY
  22. DIOVAN [Concomitant]
     Active Substance: VALSARTAN
     Dosage: 160 MG, 2X/DAY
     Route: 048

REACTIONS (3)
  - Malaise [Recovering/Resolving]
  - Headache [Recovering/Resolving]
  - Arthritis [Unknown]

NARRATIVE: CASE EVENT DATE: 20151019
